FAERS Safety Report 9335563 (Version 1)
Quarter: 2013Q2

REPORT INFORMATION
  Report Type: Spontaneous
  Country: IT (occurrence: IT)
  Receive Date: 20130605
  Receipt Date: 20130605
  Transmission Date: 20140414
  Serious: Yes (Death)
  Sender: FDA-Public Use
  Company Number: IT-GLAXOSMITHKLINE-B0897173A

PATIENT
  Sex: Female

DRUGS (1)
  1. MELPHALAN [Suspect]
     Indication: PRODUCT USED FOR UNKNOWN INDICATION
     Route: 065

REACTIONS (3)
  - Anuria [Fatal]
  - Haematuria [Fatal]
  - Febrile neutropenia [Fatal]
